FAERS Safety Report 4459230-5 (Version None)
Quarter: 2004Q3

REPORT INFORMATION
  Report Type: 
  Country: None (occurrence: None)
  Receive Date: 20040923
  Receipt Date: 20040920
  Transmission Date: 20050211
  Serious: Yes (Hospitalization)
  Sender: FDA-Public Use
  Company Number: 2004CG01471

PATIENT
  Age: 82 Year
  Sex: Female
  Weight: 65 kg

DRUGS (4)
  1. CRESTOR [Suspect]
     Dosage: 10 MG DAILY PO
     Route: 048
     Dates: start: 20040415, end: 20040616
  2. PLAVIX [Concomitant]
  3. NOOTROPYL [Concomitant]
  4. DEHYDROEPIANDROSTERONE [Concomitant]

REACTIONS (1)
  - NEUTROPENIA [None]
